FAERS Safety Report 20194981 (Version 1)
Quarter: 2021Q4

REPORT INFORMATION
  Report Type: Spontaneous
  Country: US (occurrence: None)
  Receive Date: 20211216
  Receipt Date: 20211216
  Transmission Date: 20220303
  Serious: Yes (Hospitalization)
  Sender: FDA-Public Use
  Company Number: None

PATIENT
  Age: 79 Year
  Sex: Male
  Weight: 95.7 kg

DRUGS (1)
  1. OCTAGAM IMMUNE GLOBULIN (HUMAN) [Suspect]
     Active Substance: HUMAN IMMUNOGLOBULIN G
     Indication: Guillain-Barre syndrome
     Dosage: OTHER FREQUENCY : ONCE;?
     Route: 041
     Dates: start: 20211214, end: 20211214

REACTIONS (4)
  - Delirium [None]
  - Body temperature increased [None]
  - Anaphylactoid reaction [None]
  - Autoantibody positive [None]

NARRATIVE: CASE EVENT DATE: 20211214
